FAERS Safety Report 21038812 (Version 2)
Quarter: 2022Q3

REPORT INFORMATION
  Report Type: Spontaneous
  Country: AU (occurrence: AU)
  Receive Date: 20220704
  Receipt Date: 20220817
  Transmission Date: 20221026
  Serious: Yes (Death, Other)
  Sender: FDA-Public Use
  Company Number: AU-AMGEN-AUSSP2022112334

PATIENT

DRUGS (4)
  1. BEVACIZUMAB [Suspect]
     Active Substance: BEVACIZUMAB
     Indication: Non-small cell lung cancer stage IV
     Dosage: 15 MILLIGRAM PER KILOGRAM
     Route: 065
  2. ATEZOLIZUMAB [Concomitant]
     Active Substance: ATEZOLIZUMAB
     Dosage: 1200 MILLIGRAM
  3. CARBOPLATIN [Concomitant]
     Active Substance: CARBOPLATIN
     Dosage: AREA UNDER THE CURVE
  4. PACLITAXEL [Concomitant]
     Active Substance: PACLITAXEL
     Dosage: 200 MILLIGRAM/M2

REACTIONS (1)
  - Intestinal perforation [Fatal]
